FAERS Safety Report 5612599-8 (Version None)
Quarter: 2008Q1

REPORT INFORMATION
  Report Type: 
  Country: None (occurrence: None)
  Receive Date: 20080201
  Receipt Date: 20080201
  Transmission Date: 20080703
  Serious: Yes (Hospitalization)
  Sender: FDA-Public Use
  Company Number: None

PATIENT
  Age: 54 Year
  Sex: Male
  Weight: 78.02 kg

DRUGS (1)
  1. LORATADINE [Suspect]
     Indication: ANTIALLERGIC THERAPY
     Dosage: 10MG EVERY DAY PO
     Route: 048
     Dates: start: 20080120, end: 20080124

REACTIONS (5)
  - ABASIA [None]
  - ASTHENIA [None]
  - HALLUCINATION [None]
  - LETHARGY [None]
  - SOMNOLENCE [None]
